FAERS Safety Report 6245331-8 (Version None)
Quarter: 2009Q2

REPORT INFORMATION
  Report Type: 
  Country: None (occurrence: None)
  Receive Date: 20090625
  Receipt Date: 20090615
  Transmission Date: 20091009
  Serious: No
  Sender: FDA-Public Use
  Company Number: US-ELI_LILLY_AND_COMPANY-US200903004265

PATIENT
  Sex: Female
  Weight: 93.878 kg

DRUGS (1)
  1. ZYPREXA [Suspect]
     Dosage: 1 D/F, UNK
     Dates: start: 19960101

REACTIONS (3)
  - DIABETES MELLITUS [None]
  - OVERDOSE [None]
  - WEIGHT INCREASED [None]
